FAERS Safety Report 10183255 (Version 3)
Quarter: 2014Q3

REPORT INFORMATION
  Report Type: Spontaneous
  Country: US (occurrence: US)
  Receive Date: 20140520
  Receipt Date: 20140829
  Transmission Date: 20150326
  Serious: Yes (Other)
  Sender: FDA-Public Use
  Company Number: US-PFIZER INC-2014135994

PATIENT
  Age: 69 Year
  Sex: Male

DRUGS (11)
  1. LYRICA [Suspect]
     Active Substance: PREGABALIN
     Indication: MULTIPLE SCLEROSIS
     Dosage: 300 MG, 2X/DAY
     Route: 048
     Dates: start: 201107
  2. LYRICA [Suspect]
     Active Substance: PREGABALIN
     Indication: PAIN
     Dosage: 300 MG, 2X/DAY
     Route: 048
     Dates: start: 20131125
  3. TYSABRI [Concomitant]
     Active Substance: NATALIZUMAB
     Dosage: UNK ( 300MG / 15 ML) EVERY 4 WEEKS
     Dates: start: 20120410
  4. CYMBALTA [Concomitant]
     Active Substance: DULOXETINE HYDROCHLORIDE
     Dosage: 30 MG, 3X/DAY
     Route: 048
     Dates: start: 20120201
  5. GLUCOPHAGE [Concomitant]
     Active Substance: METFORMIN HYDROCHLORIDE
     Dosage: 1500 MG, DAILY (1 QAM AND 2 QHS)
     Route: 048
     Dates: start: 20120119
  6. PRAVASTATIN SODIUM. [Concomitant]
     Active Substance: PRAVASTATIN SODIUM
     Dosage: 40 MG, 1X/DAY
     Route: 048
     Dates: start: 20110607
  7. VITAMIN D [Concomitant]
     Active Substance: CHOLECALCIFEROL
     Dosage: 50000 IU (1 PO Q WEEK X 12 WEEKS)
     Route: 048
     Dates: start: 20120523
  8. GLIPIZIDE. [Concomitant]
     Active Substance: GLIPIZIDE
     Dosage: 5 MG, 1X/DAY
     Route: 048
     Dates: start: 20110607
  9. TEMAZEPAM. [Concomitant]
     Active Substance: TEMAZEPAM
     Dosage: 30 MG, 1X/DAY
     Route: 048
     Dates: start: 20120117
  10. MIRTAZAPINE. [Concomitant]
     Active Substance: MIRTAZAPINE
     Dosage: 30 MG, 1X/DAY
     Route: 048
     Dates: start: 20120119
  11. ALPRAZOLAM. [Concomitant]
     Active Substance: ALPRAZOLAM
     Dosage: 1 MG (0.5 MG 2 PO), 2X/DAY
     Route: 048
     Dates: start: 20120522

REACTIONS (3)
  - Confusional state [Unknown]
  - Multiple sclerosis [Unknown]
  - Off label use [Unknown]
